FAERS Safety Report 21717510 (Version 1)
Quarter: 2022Q4

REPORT INFORMATION
  Report Type: Spontaneous
  Country: US (occurrence: None)
  Receive Date: 20221212
  Receipt Date: 20221212
  Transmission Date: 20230113
  Serious: Yes (Hospitalization)
  Sender: FDA-Public Use
  Company Number: None

PATIENT
  Age: 81 Year
  Sex: Male

DRUGS (1)
  1. APIXABAN [Suspect]
     Active Substance: APIXABAN
     Indication: Atrial fibrillation
     Dates: start: 20190815

REACTIONS (6)
  - Rectal haemorrhage [None]
  - Haemoglobin decreased [None]
  - Diverticulum intestinal [None]
  - Haemorrhoidal haemorrhage [None]
  - Gastric haemorrhage [None]
  - Melaena [None]

NARRATIVE: CASE EVENT DATE: 20220815
